FAERS Safety Report 24411042 (Version 1)
Quarter: 2024Q4

REPORT INFORMATION
  Report Type: Spontaneous
  Country: DE (occurrence: DE)
  Receive Date: 20241008
  Receipt Date: 20241008
  Transmission Date: 20250114
  Serious: Yes (Death)
  Sender: TAIHO ONCOLOGY INC
  Company Number: DE-TAIHOP-2024-009483

PATIENT
  Sex: Female

DRUGS (1)
  1. INQOVI [Suspect]
     Active Substance: CEDAZURIDINE\DECITABINE
     Indication: Acute myeloid leukaemia
     Dosage: UNK (35 MG OF DECITABINE AND 100 MG OF CEDAZURIDINE). DOSE AND FREQUENCY WERE NOT PROVIDED.
     Route: 048

REACTIONS (1)
  - Cerebrovascular accident [Fatal]
